FAERS Safety Report 10231625 (Version 1)
Quarter: 2014Q2

REPORT INFORMATION
  Report Type: Spontaneous
  Country: GB (occurrence: GB)
  Receive Date: 20140611
  Receipt Date: 20140611
  Transmission Date: 20141212
  Serious: Yes (Disabling, Other)
  Sender: FDA-Public Use
  Company Number: GB-TEVA-486822ISR

PATIENT
  Age: 62 Year
  Sex: Male

DRUGS (10)
  1. PRAVASTATIN [Suspect]
     Dosage: 40 MILLIGRAM DAILY; 40 MG ONE AT NIGHT
  2. AMLODIPIN [Concomitant]
  3. BISOPROLOL FUMARATE [Concomitant]
  4. CANDESARTAN CILEXETIL [Concomitant]
  5. CLENIL MODULITE [Concomitant]
  6. METFORMIN [Concomitant]
  7. PROTHIADEN [Concomitant]
  8. VENTOLIN [Concomitant]
  9. LANSOPRAZOLE [Concomitant]
  10. PHYLLOCONTIN CONTINUS [Concomitant]

REACTIONS (2)
  - Pain [Recovered/Resolved with Sequelae]
  - Gait disturbance [Unknown]
